FAERS Safety Report 8103158-6 (Version None)
Quarter: 2011Q4

REPORT INFORMATION
  Report Type: 
  Country: None (occurrence: None)
  Receive Date: 20111222
  Receipt Date: 20110921
  Transmission Date: 20120403
  Serious: Yes (Hospitalization)
  Sender: FDA-Public Use
  Company Number: UTC-010395

PATIENT
  Age: 52 Year
  Sex: Female
  Weight: 72.82 kg

DRUGS (5)
  1. PLAVIX [Concomitant]
  2. TYVASO [Suspect]
     Indication: PULMONARY ARTERIAL HYPERTENSION
     Dosage: 216 MCG (54 MCG, 4 IN 1 D), INHALATION
     Route: 055
     Dates: start: 20110718
  3. ADCIRCA [Concomitant]
  4. DIURETICS (DIURETICS) [Concomitant]
  5. ASPIRIN [Concomitant]

REACTIONS (5)
  - COUGH [None]
  - CORONARY ARTERY OCCLUSION [None]
  - HEADACHE [None]
  - PROCEDURAL PAIN [None]
  - DECREASED APPETITE [None]
